FAERS Safety Report 7853685-1 (Version None)
Quarter: 2011Q4

REPORT INFORMATION
  Report Type: 
  Country: None (occurrence: None)
  Receive Date: 20111026
  Receipt Date: 20111012
  Transmission Date: 20120403
  Serious: Yes (Other)
  Sender: FDA-Public Use
  Company Number: US-BAYER-2010-009116

PATIENT
  Age: 22 Year
  Sex: Female
  Weight: 77 kg

DRUGS (3)
  1. YASMIN [Suspect]
     Dosage: UNK
     Dates: start: 20040101, end: 20090101
  2. YAZ [Suspect]
     Indication: MENSTRUAL CYCLE MANAGEMENT
  3. YAZ [Suspect]
     Indication: CONTRACEPTION
     Dosage: UNK
     Dates: start: 20040101, end: 20090101

REACTIONS (4)
  - CHOLELITHIASIS [None]
  - CHOLECYSTITIS [None]
  - INJURY [None]
  - PAIN [None]
